FAERS Safety Report 6662933-5 (Version None)
Quarter: 2010Q1

REPORT INFORMATION
  Report Type: 
  Country: None (occurrence: None)
  Receive Date: 20100325
  Receipt Date: 20090827
  Transmission Date: 20100710
  Serious: Yes (Other)
  Sender: FDA-Public Use
  Company Number: 2009-07041

PATIENT
  Sex: Female

DRUGS (1)
  1. DOXYCYCLINE HYCLATE [Suspect]
     Indication: DRUG USE FOR UNKNOWN INDICATION
     Dosage: TOOK 2 TIMES, 1 CAP BEFORE BED, ORAL
     Route: 048

REACTIONS (2)
  - DECREASED APPETITE [None]
  - OESOPHAGEAL ULCER [None]
